FAERS Safety Report 9558800 (Version 3)
Quarter: 2014Q2

REPORT INFORMATION
  Report Type: Spontaneous
  Country: US (occurrence: US)
  Receive Date: 20130926
  Receipt Date: 20140428
  Transmission Date: 20141212
  Serious: Yes (Hospitalization, Other)
  Sender: FDA-Public Use
  Company Number: US-RB-058724-13

PATIENT
  Age: 59 Year
  Sex: Male
  Weight: 72.57 kg

DRUGS (10)
  1. SUBOXONE FILM [Suspect]
     Indication: DRUG DEPENDENCE
     Dosage: SUBOXONE FILM; DOSING DETAILS UNKNOWN
     Route: 060
     Dates: start: 20130823, end: 201308
  2. SUBOXONE FILM [Suspect]
     Dosage: SUBOXONE FILM
     Route: 060
     Dates: start: 201308, end: 20140325
  3. SUBOXONE FILM [Suspect]
     Dosage: SUBOXONE FILM
     Route: 060
     Dates: start: 201404
  4. DILAUDID [Suspect]
     Indication: PROCEDURAL PAIN
     Dosage: DOSING DETAILS UNKNOWN
     Route: 065
     Dates: start: 201403, end: 201404
  5. UNSPECIFIED IMMUNOSUPPRESSANT [Concomitant]
     Indication: RENAL TRANSPLANT
     Dosage: DOSING DETAILS UNKNOWN; DAILY
     Route: 048
     Dates: start: 2009
  6. UNSPECIFIED IMMUNOSUPPRESSANT [Concomitant]
     Indication: RENAL TRANSPLANT
     Dosage: DOSING DETAILS UNKNOWN; DAILY
     Route: 048
     Dates: start: 2009
  7. DIAZEPAM [Concomitant]
     Indication: ANXIETY
     Dosage: TAPERED DOSES, DAILY
     Route: 048
  8. NEURONTIN [Concomitant]
     Indication: NEUROPATHY PERIPHERAL
     Route: 048
  9. SYNTHROID [Concomitant]
     Indication: HYPOTHYROIDISM
     Dosage: DOSING DETAILS UNKNOWN
     Route: 048
  10. VALIUM [Concomitant]
     Indication: ANXIETY
     Dosage: FURTHER DOSING DETAILS UNKNOWN
     Route: 048

REACTIONS (21)
  - Wrong technique in drug usage process [Recovered/Resolved]
  - Off label use [Recovered/Resolved]
  - Abdominal pain [Recovered/Resolved]
  - Dyspnoea [Recovered/Resolved]
  - Vomiting [Recovered/Resolved]
  - Hyponatraemia [Recovered/Resolved]
  - Hypertension [Not Recovered/Not Resolved]
  - Weight decreased [Not Recovered/Not Resolved]
  - Energy increased [Not Recovered/Not Resolved]
  - Therapeutic response changed [Not Recovered/Not Resolved]
  - Joint swelling [Not Recovered/Not Resolved]
  - Ear discomfort [Not Recovered/Not Resolved]
  - Nasal congestion [Not Recovered/Not Resolved]
  - Dyspnoea [Not Recovered/Not Resolved]
  - Abdominal pain upper [Recovered/Resolved]
  - Intestinal gangrene [Recovered/Resolved]
  - Procedural pain [Recovering/Resolving]
  - Therapeutic product ineffective [Recovered/Resolved]
  - Pyrexia [Recovering/Resolving]
  - Pneumonia [Recovering/Resolving]
  - Urinary tract infection [Recovering/Resolving]
